FAERS Safety Report 9714112 (Version 1)
Quarter: 2013Q4

REPORT INFORMATION
  Report Type: Spontaneous
  Country: US (occurrence: US)
  Receive Date: 20131126
  Receipt Date: 20131126
  Transmission Date: 20140711
  Serious: No
  Sender: FDA-Public Use
  Company Number: US-GILEAD-2008-0018862

PATIENT
  Age: 41 Year
  Sex: Female
  Weight: 89.81 kg

DRUGS (10)
  1. LETAIRIS [Suspect]
     Indication: PULMONARY ARTERIAL HYPERTENSION
     Route: 048
     Dates: start: 20081015, end: 20081018
  2. SPIRONOLACTONE [Concomitant]
     Route: 048
  3. PROPANOLOL [Concomitant]
     Route: 048
  4. PREMARIN [Concomitant]
     Route: 048
  5. URSO FORTE [Concomitant]
     Route: 048
  6. REGLAN [Concomitant]
     Route: 048
  7. CALCITRIOL [Concomitant]
     Route: 048
  8. CALTRATE 600 + D [Concomitant]
     Route: 048
  9. CLONAZEPAM [Concomitant]
     Route: 048
  10. FOSAMAX [Concomitant]
     Route: 048

REACTIONS (1)
  - Local swelling [Recovered/Resolved]
